FAERS Safety Report 17264665 (Version 13)
Quarter: 2021Q2

REPORT INFORMATION
  Report Type: Spontaneous
  Country: US (occurrence: US)
  Receive Date: 20200113
  Receipt Date: 20210611
  Transmission Date: 20210716
  Serious: Yes (Hospitalization, Other)
  Sender: FDA-Public Use
  Company Number: US-BAYER-2020-002648

PATIENT
  Age: 28 Year
  Sex: Male

DRUGS (11)
  1. KOGENATE FS [Suspect]
     Active Substance: ANTIHEMOPHILIC FACTOR, HUMAN RECOMBINANT
     Indication: FACTOR VIII DEFICIENCY
     Dosage: USING DAILY PRPHYLAXIS DOSES TO TREAT RIGHT SHOULDER BLEEDING
     Route: 042
     Dates: start: 20200407, end: 20200410
  2. KOGENATE FS [Suspect]
     Active Substance: ANTIHEMOPHILIC FACTOR, HUMAN RECOMBINANT
     Indication: FACTOR VIII DEFICIENCY
     Dosage: 3000 IU, QOD, SLOW IV PUSH
     Route: 042
     Dates: start: 20180505
  3. KOGENATE FS [Suspect]
     Active Substance: ANTIHEMOPHILIC FACTOR, HUMAN RECOMBINANT
     Indication: HAEMORRHAGE PROPHYLAXIS
     Dosage: 2782 U, QOD
     Route: 042
     Dates: start: 20200215
  4. KOGENATE FS [Suspect]
     Active Substance: ANTIHEMOPHILIC FACTOR, HUMAN RECOMBINANT
     Indication: FACTOR VIII DEFICIENCY
     Dosage: 2 DOSES FOR BLEED
     Route: 042
  5. KOGENATE FS [Suspect]
     Active Substance: ANTIHEMOPHILIC FACTOR, HUMAN RECOMBINANT
     Indication: FACTOR VIII DEFICIENCY
     Dosage: 1922 U
     Route: 042
     Dates: start: 20191025
  6. KOGENATE FS [Suspect]
     Active Substance: ANTIHEMOPHILIC FACTOR, HUMAN RECOMBINANT
     Indication: FACTOR VIII DEFICIENCY
     Dosage: 3000 U QOD
     Route: 042
     Dates: start: 20191025
  7. KOGENATE FS [Suspect]
     Active Substance: ANTIHEMOPHILIC FACTOR, HUMAN RECOMBINANT
     Indication: FACTOR VIII DEFICIENCY
     Dosage: 1 DOSE DAILY FOR THREE DAYS TO TREAT BLEED RECURRED ON RIGHT ARM TO SHOULDER
     Route: 042
     Dates: start: 20200415, end: 20200417
  8. KOGENATE FS [Suspect]
     Active Substance: ANTIHEMOPHILIC FACTOR, HUMAN RECOMBINANT
     Indication: FACTOR VIII DEFICIENCY
     Dosage: 2125 IU, FOR THE STOMACH AND INTESTINAL BLEED TREATMENT
     Route: 042
  9. HEMLIBRA [Concomitant]
     Active Substance: EMICIZUMAB-KXWH
  10. KOGENATE FS [Suspect]
     Active Substance: ANTIHEMOPHILIC FACTOR, HUMAN RECOMBINANT
     Indication: FACTOR VIII DEFICIENCY
     Dosage: 1006 U
     Route: 042
     Dates: start: 20191025
  11. KOGENATE FS [Suspect]
     Active Substance: ANTIHEMOPHILIC FACTOR, HUMAN RECOMBINANT
     Indication: FACTOR VIII DEFICIENCY
     Dosage: 2125 U (Q24HOURS PRN)
     Route: 042

REACTIONS (15)
  - Intestinal haemorrhage [None]
  - Limb injury [None]
  - Haemorrhage [None]
  - Haemorrhage subcutaneous [Recovered/Resolved]
  - Haemarthrosis [Recovered/Resolved]
  - Increased viscosity of upper respiratory secretion [None]
  - Haemarthrosis [None]
  - Haemarthrosis [Recovered/Resolved]
  - Arthralgia [None]
  - Blood pressure abnormal [None]
  - Gastric haemorrhage [None]
  - Mental disorder [None]
  - Haemarthrosis [Recovered/Resolved]
  - Intentional product use issue [None]
  - Haemorrhage [None]

NARRATIVE: CASE EVENT DATE: 202002
